FAERS Safety Report 10218345 (Version 2)
Quarter: 2014Q2

REPORT INFORMATION
  Report Type: Spontaneous
  Country: US (occurrence: US)
  Receive Date: 20140605
  Receipt Date: 20140626
  Transmission Date: 20141212
  Serious: No
  Sender: FDA-Public Use
  Company Number: US-009507513-1405USA012010

PATIENT
  Age: 30 Year
  Sex: Female
  Weight: 62.4 kg

DRUGS (1)
  1. NEXPLANON [Suspect]
     Indication: CONTRACEPTION
     Dosage: 68 MG ONE ROD INSERTED EVERY 3 YEARS
     Route: 059
     Dates: start: 20131007

REACTIONS (4)
  - Device breakage [Unknown]
  - No adverse event [Unknown]
  - Pain [Unknown]
  - Device kink [Unknown]
